FAERS Safety Report 4878158-X (Version None)
Quarter: 2005Q4

REPORT INFORMATION
  Report Type: 
  Country: None (occurrence: None)
  Receive Date: 20051212
  Receipt Date: 20051109
  Transmission Date: 20060501
  Serious: Yes (Other)
  Sender: FDA-Public Use
  Company Number: 2005-02344

PATIENT
  Age: 66 Year
  Sex: Female
  Weight: 56.7 kg

DRUGS (1)
  1. VELCADE [Suspect]
     Indication: MULTIPLE MYELOMA
     Dosage: 1.30 MG/M2, UNK, UNK
     Route: 065
     Dates: start: 20051017

REACTIONS (4)
  - ANAEMIA [None]
  - CONSTIPATION [None]
  - NEUROPATHY [None]
  - VISION BLURRED [None]
